FAERS Safety Report 8524934-1 (Version None)
Quarter: 2012Q3

REPORT INFORMATION
  Report Type: 
  Country: None (occurrence: None)
  Receive Date: 20120720
  Receipt Date: 20120717
  Transmission Date: 20120928
  Serious: Yes (Hospitalization, Other)
  Sender: FDA-Public Use
  Company Number: US-009507513-1204USA00036

PATIENT

DRUGS (5)
  1. FOSAMAX [Suspect]
     Dosage: 70 MG, QW
     Route: 048
     Dates: start: 20070829, end: 20100801
  2. COZAAR [Concomitant]
     Indication: HYPERTENSION
     Route: 048
     Dates: start: 19800101
  3. NORVASC [Concomitant]
     Indication: HYPERTENSION
  4. FOSAMAX [Suspect]
     Indication: OSTEOPENIA
     Dosage: 10 MG, QD
     Route: 048
     Dates: start: 19951205, end: 20100801
  5. VYTORIN [Concomitant]
     Indication: BLOOD CHOLESTEROL INCREASED
     Dosage: 10/20
     Route: 048
     Dates: start: 19800101, end: 20110301

REACTIONS (10)
  - FEMUR FRACTURE [None]
  - CERVICAL POLYP [None]
  - OSTEOPOROSIS [None]
  - ANAEMIA POSTOPERATIVE [None]
  - RECTOCELE [None]
  - BREAST CYST [None]
  - LIMB ASYMMETRY [None]
  - CYST [None]
  - ATROPHIC VULVOVAGINITIS [None]
  - HAEMORRHOIDS [None]
